FAERS Safety Report 24281924 (Version 1)
Quarter: 2024Q3

REPORT INFORMATION
  Report Type: Spontaneous
  Country: US (occurrence: US)
  Receive Date: 20240904
  Receipt Date: 20240904
  Transmission Date: 20241016
  Serious: Yes (Hospitalization, Other)
  Sender: GLAND PHARMA
  Company Number: US-GLANDPHARMA-US-2024GLNLIT00711

PATIENT
  Sex: Female

DRUGS (3)
  1. MIDAZOLAM [Suspect]
     Active Substance: MIDAZOLAM
     Indication: Cardioversion
     Route: 065
  2. AMIODARONE HYDROCHLORIDE [Suspect]
     Active Substance: AMIODARONE HYDROCHLORIDE
     Indication: Atrial fibrillation
     Route: 048
  3. RIVAROXABAN [Concomitant]
     Active Substance: RIVAROXABAN
     Indication: Atrial flutter
     Route: 065

REACTIONS (5)
  - Pulseless electrical activity [Recovering/Resolving]
  - Cardiac arrest [Recovering/Resolving]
  - Bradycardia [Recovering/Resolving]
  - Hyperthyroidism [Recovering/Resolving]
  - Drug ineffective for unapproved indication [Unknown]
